FAERS Safety Report 8912714 (Version 2)
Quarter: 2012Q4

REPORT INFORMATION
  Report Type: Report from Study
  Country: FR (occurrence: FR)
  Receive Date: 20121116
  Receipt Date: 20121127
  Transmission Date: 20130627
  Serious: No
  Sender: FDA-Public Use
  Company Number: FR-MILLENNIUM PHARMACEUTICALS, INC.-2012-06880

PATIENT

DRUGS (4)
  1. VELCADE [Suspect]
     Indication: MANTLE CELL LYMPHOMA
     Dosage: 1 mg/m2, UNK
     Route: 042
     Dates: start: 20120316, end: 20120823
  2. LEVACT [Suspect]
     Indication: MANTLE CELL LYMPHOMA
     Dosage: 60 mg/m2, UNK
     Route: 042
     Dates: start: 20120315, end: 20120814
  3. MABTHERA [Suspect]
     Indication: MANTLE CELL LYMPHOMA
     Dosage: 375 mg/m2, UNK
     Route: 042
     Dates: start: 20120315, end: 20120814
  4. DEXAMETHASONE [Suspect]
     Indication: MANTLE CELL LYMPHOMA
     Dosage: 40 mg, UNK
     Route: 042
     Dates: start: 20120315, end: 20120814

REACTIONS (1)
  - Biopsy kidney [Recovered/Resolved]
